FAERS Safety Report 10465821 (Version 1)
Quarter: 2014Q3

REPORT INFORMATION
  Report Type: Spontaneous
  Country: NO (occurrence: NO)
  Receive Date: 20140921
  Receipt Date: 20140921
  Transmission Date: 20150326
  Serious: Yes (Congenital Anomaly)
  Sender: FDA-Public Use
  Company Number: NO-009507513-1409NOR009267

PATIENT
  Sex: Female

DRUGS (1)
  1. TIMOTHY, STANDARDIZED [Suspect]
     Active Substance: PHLEUM PRATENSE POLLEN
     Dosage: 75000 SQ;DAILY
     Route: 064
     Dates: start: 201110

REACTIONS (2)
  - Foetal exposure during pregnancy [Unknown]
  - Deafness unilateral [Not Recovered/Not Resolved]
